FAERS Safety Report 4593088-9 (Version None)
Quarter: 2005Q1

REPORT INFORMATION
  Report Type: 
  Country: None (occurrence: None)
  Receive Date: 20050224
  Receipt Date: 20040105
  Transmission Date: 20050727
  Serious: No
  Sender: FDA-Public Use
  Company Number: US-BRISTOL-MYERS SQUIBB COMPANY-12472619

PATIENT
  Sex: Female

DRUGS (2)
  1. EXCEDRIN (MIGRAINE) [Suspect]
     Indication: MIGRAINE
  2. IMITREX [Concomitant]
     Indication: MIGRAINE

REACTIONS (1)
  - STOMACH DISCOMFORT [None]
